FAERS Safety Report 10163890 (Version 2)
Quarter: 2014Q2

REPORT INFORMATION
  Report Type: Report from Study
  Country: JP (occurrence: JP)
  Receive Date: 20140510
  Receipt Date: 20140604
  Transmission Date: 20141212
  Serious: Yes (Death)
  Sender: FDA-Public Use
  Company Number: PHHY2014JP056567

PATIENT
  Age: 81 Year
  Sex: Female

DRUGS (2)
  1. EXELON [Suspect]
     Indication: DEMENTIA ALZHEIMER^S TYPE
     Dosage: 4.5 MG, QD
     Route: 062
     Dates: start: 20130730, end: 20130828
  2. EXELON [Suspect]
     Dosage: 9 MG, QD
     Route: 062
     Dates: start: 20130829

REACTIONS (2)
  - Death [Fatal]
  - Off label use [Unknown]
